FAERS Safety Report 7124477-6 (Version None)
Quarter: 2010Q4

REPORT INFORMATION
  Report Type: 
  Country: None (occurrence: None)
  Receive Date: 20101127
  Receipt Date: 20101118
  Transmission Date: 20110411
  Serious: Yes (Other)
  Sender: FDA-Public Use
  Company Number: PHHY2010US78713

PATIENT
  Sex: Female

DRUGS (3)
  1. TRILEPTAL [Suspect]
     Dosage: 1.5 DF
  2. SEDATOL [Concomitant]
  3. XANAX [Concomitant]

REACTIONS (14)
  - ARTHRALGIA [None]
  - BALANCE DISORDER [None]
  - DIPLOPIA [None]
  - DIZZINESS [None]
  - DYSPNOEA [None]
  - DYSSTASIA [None]
  - FALL [None]
  - GAIT DISTURBANCE [None]
  - HYPOAESTHESIA [None]
  - PAIN IN EXTREMITY [None]
  - PRESYNCOPE [None]
  - TACHYPHRENIA [None]
  - TREMOR [None]
  - VERTIGO [None]
